FAERS Safety Report 7284574-1 (Version None)
Quarter: 2011Q1

REPORT INFORMATION
  Report Type: 
  Country: None (occurrence: None)
  Receive Date: 20110210
  Receipt Date: 20110131
  Transmission Date: 20110831
  Serious: Yes (Hospitalization)
  Sender: FDA-Public Use
  Company Number: JP-BIOGENIDEC-2009BI014525

PATIENT
  Age: 33 Year
  Sex: Female

DRUGS (14)
  1. AVONEX [Suspect]
     Indication: RELAPSING-REMITTING MULTIPLE SCLEROSIS
     Route: 030
     Dates: start: 20090204, end: 20090701
  2. ALLELOCK [Concomitant]
     Dates: start: 20090731
  3. ROHYPNOL [Concomitant]
     Indication: PRODUCT USED FOR UNKNOWN INDICATION
  4. LENDORMIN [Concomitant]
     Indication: PRODUCT USED FOR UNKNOWN INDICATION
     Dates: start: 20090218
  5. SENNOSIDE [Concomitant]
     Dates: start: 20090514
  6. MYONAL [Concomitant]
     Indication: PRODUCT USED FOR UNKNOWN INDICATION
     Dates: start: 20090520
  7. AVONEX [Suspect]
     Route: 030
     Dates: start: 20090807, end: 20100201
  8. AVONEX [Suspect]
     Route: 030
     Dates: start: 20100201
  9. FERRUM [Concomitant]
     Indication: PRODUCT USED FOR UNKNOWN INDICATION
     Dates: start: 20090424
  10. DEPAS [Concomitant]
     Indication: PRODUCT USED FOR UNKNOWN INDICATION
  11. VOLTAREN [Concomitant]
     Indication: PRODUCT USED FOR UNKNOWN INDICATION
     Dates: start: 20090213
  12. ACTIT [Concomitant]
     Dates: start: 20090512, end: 20090516
  13. NAIXAN [Concomitant]
     Dates: start: 20090513
  14. MUCOSTA [Concomitant]
     Dates: start: 20090513

REACTIONS (4)
  - MULTIPLE SCLEROSIS RELAPSE [None]
  - BLOOD POTASSIUM DECREASED [None]
  - PALPITATIONS [None]
  - DIZZINESS POSTURAL [None]
